FAERS Safety Report 7228906-9 (Version None)
Quarter: 2011Q1

REPORT INFORMATION
  Report Type: 
  Country: None (occurrence: None)
  Receive Date: 20110117
  Receipt Date: 20110106
  Transmission Date: 20110831
  Serious: Yes (Hospitalization)
  Sender: FDA-Public Use
  Company Number: US-ELI_LILLY_AND_COMPANY-US201012006503

PATIENT
  Sex: Male
  Weight: 71.81 kg

DRUGS (11)
  1. PLAVIX [Concomitant]
     Dosage: 75 MG, DAILY (1/D)
     Route: 048
     Dates: start: 20100701
  2. TOPROL-XL [Concomitant]
     Indication: BLOOD PRESSURE
     Dosage: 100 MG, DAILY (1/D)
     Route: 048
  3. OXYCODONE [Concomitant]
     Indication: METASTASES TO BONE
     Dosage: 5 MG, OTHER
     Route: 048
  4. CETUXIMAB [Suspect]
     Indication: NON-SMALL CELL LUNG CANCER
     Dosage: 480 MG, UNK
     Dates: start: 20101102, end: 20101214
  5. PEMETREXED [Suspect]
     Indication: NON-SMALL CELL LUNG CANCER
     Dosage: 709 MG, UNK
     Dates: start: 20101102
  6. OXYCONTIN [Concomitant]
     Indication: METASTASES TO BONE
     Dosage: 10 MG, 2/D
     Route: 048
  7. GLUCOPHAGE [Concomitant]
     Dosage: 1000 MG, 2/D
     Route: 048
     Dates: start: 20100101
  8. CARBOPLATIN [Suspect]
     Indication: NON-SMALL CELL LUNG CANCER
     Dosage: 544 MG, UNK
     Dates: start: 20101102
  9. LOVENOX [Concomitant]
     Indication: PULMONARY EMBOLISM
     Dosage: 60 MG, UNK
     Route: 058
     Dates: start: 20101001
  10. PULMICORT [Concomitant]
     Dosage: 0.5 MG, 2/D
     Route: 055
     Dates: start: 20101214
  11. CLONIDINE [Concomitant]
     Indication: BLOOD PRESSURE
     Dosage: 0.1 MG, DAILY (1/D)
     Route: 048

REACTIONS (2)
  - CEREBRAL HAEMORRHAGE [None]
  - CONSTIPATION [None]
